FAERS Safety Report 17678738 (Version 4)
Quarter: 2020Q4

REPORT INFORMATION
  Report Type: Report from Study
  Country: US (occurrence: US)
  Receive Date: 20200417
  Receipt Date: 20201008
  Transmission Date: 20210113
  Serious: No
  Sender: FDA-Public Use
  Company Number: NVSC2020US102303

PATIENT
  Age: 67 Year
  Sex: Female

DRUGS (6)
  1. POTASSIUM [Suspect]
     Active Substance: POTASSIUM
     Indication: PRODUCT USED FOR UNKNOWN INDICATION
     Dosage: UNK, UNKNOWN
     Route: 065
  2. CARVEDILOL. [Suspect]
     Active Substance: CARVEDILOL
     Indication: PRODUCT USED FOR UNKNOWN INDICATION
     Dosage: UNK, UNKNOWN
     Route: 065
  3. BENADRYL [Suspect]
     Active Substance: DIPHENHYDRAMINE HYDROCHLORIDE
     Indication: NASAL CONGESTION
     Dosage: UNK, UNKNOWN
     Route: 065
  4. LASIX [Suspect]
     Active Substance: FUROSEMIDE
     Indication: PRODUCT USED FOR UNKNOWN INDICATION
     Dosage: UNK
     Route: 065
  5. FUROSEMIDE. [Suspect]
     Active Substance: FUROSEMIDE
     Indication: PRODUCT USED FOR UNKNOWN INDICATION
     Dosage: UNK, UNKNOWN
     Route: 065
  6. ENTRESTO [Suspect]
     Active Substance: SACUBITRIL\VALSARTAN
     Indication: CARDIAC FAILURE CHRONIC
     Dosage: 100 MG, UNKNOWN
     Route: 065
     Dates: start: 201909

REACTIONS (21)
  - Pain in extremity [Unknown]
  - Stress [Unknown]
  - Contusion [Unknown]
  - Rhinorrhoea [Unknown]
  - Arthralgia [Unknown]
  - Nasal congestion [Unknown]
  - Fluid retention [Unknown]
  - Memory impairment [Unknown]
  - Hormone level abnormal [Unknown]
  - Abdominal discomfort [Unknown]
  - Somnolence [Unknown]
  - Myalgia [Unknown]
  - Insomnia [Unknown]
  - Anxiety [Unknown]
  - Pain [Unknown]
  - Weight loss poor [Unknown]
  - Left ventricular dysfunction [Unknown]
  - Weight increased [Unknown]
  - Adverse drug reaction [Unknown]
  - Inappropriate schedule of product administration [Unknown]
  - Blood pressure abnormal [Unknown]

NARRATIVE: CASE EVENT DATE: 202003
